FAERS Safety Report 15483312 (Version 1)
Quarter: 2018Q4

REPORT INFORMATION
  Report Type: Spontaneous
  Country: DK (occurrence: DK)
  Receive Date: 20181010
  Receipt Date: 20181010
  Transmission Date: 20190205
  Serious: Yes (Hospitalization)
  Sender: FDA-Public Use
  Company Number: DK-TEVA-2018-DK-962807

PATIENT
  Age: 66 Year
  Sex: Female

DRUGS (7)
  1. IBUPROFEN ^TEVA^ [Suspect]
     Active Substance: IBUPROFEN
     Indication: PAIN
     Dosage: 1200 MILLIGRAM DAILY;
     Route: 048
     Dates: end: 201809
  2. XARELTO [Suspect]
     Active Substance: RIVAROXABAN
     Indication: ATRIAL FIBRILLATION
     Dosage: 15 MILLIGRAM DAILY;
     Route: 048
     Dates: start: 20180727
  3. METOPROLOL. [Concomitant]
     Active Substance: METOPROLOL
     Indication: RHEUMATOID ARTHRITIS
     Route: 048
  4. PARACETAMOL [Concomitant]
     Active Substance: ACETAMINOPHEN
     Indication: PAIN
     Dosage: 4000 MILLIGRAM DAILY;
     Route: 048
     Dates: start: 20180227
  5. PREDNISOLON ^DAK^ [Suspect]
     Active Substance: PREDNISOLONE
     Indication: RHEUMATOID ARTHRITIS
     Dosage: 25 MILLIGRAM DAILY;
     Route: 048
     Dates: start: 20180308, end: 201807
  6. ETANERCEPT [Concomitant]
     Active Substance: ETANERCEPT
     Indication: RHEUMATOID ARTHRITIS
     Dates: start: 20180731
  7. PANTOPRAZOLE [Concomitant]
     Active Substance: PANTOPRAZOLE
     Indication: ULCER
     Dosage: 20 MILLIGRAM DAILY;
     Route: 048
     Dates: start: 20180322

REACTIONS (3)
  - Gastric ulcer [Not Recovered/Not Resolved]
  - Gastrointestinal angiectasia [Not Recovered/Not Resolved]
  - Anaemia [Not Recovered/Not Resolved]

NARRATIVE: CASE EVENT DATE: 201807
